FAERS Safety Report 5249013-0 (Version None)
Quarter: 2007Q1

REPORT INFORMATION
  Report Type: 
  Country: None (occurrence: None)
  Receive Date: 20070228
  Receipt Date: 20060522
  Transmission Date: 20070707
  Serious: No
  Sender: FDA-Public Use
  Company Number: US-GLAXOSMITHKLINE-A0606230A

PATIENT
  Age: 52 Year
  Sex: Female

DRUGS (4)
  1. VALTREX [Suspect]
     Dosage: 500MG TWICE PER DAY
     Route: 048
     Dates: start: 19930101
  2. WELLBUTRIN XL [Concomitant]
     Dosage: 150MG PER DAY
     Route: 048
     Dates: start: 20050801
  3. LOTENSIN [Concomitant]
  4. GLUCOSAMINE [Concomitant]

REACTIONS (4)
  - BACK PAIN [None]
  - HERPES VIRUS INFECTION [None]
  - PHARMACEUTICAL PRODUCT COMPLAINT [None]
  - THERAPEUTIC RESPONSE UNEXPECTED [None]
